FAERS Safety Report 24401532 (Version 1)
Quarter: 2024Q4

REPORT INFORMATION
  Report Type: Spontaneous
  Country: CN (occurrence: CN)
  Receive Date: 20241007
  Receipt Date: 20241007
  Transmission Date: 20250115
  Serious: Yes (Other)
  Sender: ACCORD
  Company Number: CN-MLMSERVICE-20240923-PI196575-00255-1

PATIENT
  Age: 70 Year
  Sex: Male

DRUGS (2)
  1. PACLITAXEL [Suspect]
     Active Substance: PACLITAXEL
     Indication: Skin angiosarcoma
     Dosage: ADMINISTERED FOR TWO CYCLES
  2. BEVACIZUMAB [Suspect]
     Active Substance: BEVACIZUMAB
     Indication: Skin angiosarcoma
     Dosage: ADMINISTERED FOR TWO CYCLES

REACTIONS (3)
  - Transaminases increased [Unknown]
  - Biliary obstruction [Unknown]
  - Pyrexia [Unknown]
